FAERS Safety Report 14108123 (Version 4)
Quarter: 2018Q1

REPORT INFORMATION
  Report Type: Spontaneous
  Country: JP (occurrence: JP)
  Receive Date: 20171019
  Receipt Date: 20180227
  Transmission Date: 20180508
  Serious: Yes (Life-Threatening, Other)
  Sender: FDA-Public Use
  Company Number: JP-BAUSCH-BL-2017-029231

PATIENT
  Age: 67 Year
  Sex: Female

DRUGS (9)
  1. RITUXIMAB. [Suspect]
     Active Substance: RITUXIMAB
     Indication: BICYTOPENIA
     Dosage: HIGH-DOSE
     Route: 065
     Dates: start: 20160205
  2. PREDNISOLONE. [Suspect]
     Active Substance: PREDNISOLONE
     Indication: BICYTOPENIA
     Route: 065
     Dates: start: 20160115
  3. GAMMA GLOBULIN [Suspect]
     Active Substance: IMMUNE GLOBULIN NOS
     Indication: LYMPHOMA
  4. ELTROMBOPAG [Suspect]
     Active Substance: ELTROMBOPAG
     Indication: BICYTOPENIA
     Dosage: ESCALATED WEEKLY BY 12.5 MG PER DAY UP TO 50 MG PER DAY
     Route: 065
     Dates: start: 20160216, end: 20160223
  5. GAMMA GLOBULIN [Suspect]
     Active Substance: IMMUNE GLOBULIN NOS
     Indication: BICYTOPENIA
     Dosage: HIGH-DOSE
     Route: 065
     Dates: start: 20160129
  6. ELTROMBOPAG [Suspect]
     Active Substance: ELTROMBOPAG
     Dosage: ESCALATED WEEKLY BY 12.5 MG PER DAY UP TO 50 MG PER DAY
     Route: 065
  7. RITUXIMAB. [Suspect]
     Active Substance: RITUXIMAB
     Indication: LYMPHOMA
  8. DEXAMETHASONE. [Suspect]
     Active Substance: DEXAMETHASONE
     Indication: BICYTOPENIA
     Dosage: HIGH-DOSE
     Route: 065
     Dates: start: 20160129
  9. DEXAMETHASONE. [Suspect]
     Active Substance: DEXAMETHASONE
     Indication: LYMPHOMA

REACTIONS (1)
  - Drug ineffective [Unknown]

NARRATIVE: CASE EVENT DATE: 20160101
